FAERS Safety Report 18044785 (Version 12)
Quarter: 2025Q2

REPORT INFORMATION
  Report Type: Spontaneous
  Country: CA (occurrence: CA)
  Receive Date: 20200720
  Receipt Date: 20250417
  Transmission Date: 20250717
  Serious: Yes (Hospitalization, Other)
  Sender: BAYER
  Company Number: CA-PFIZER INC-2020251945

PATIENT
  Age: 75 Year
  Sex: Female
  Weight: 70 kg

DRUGS (51)
  1. NAPROXEN SODIUM [Suspect]
     Active Substance: NAPROXEN SODIUM
     Indication: Arthralgia
     Route: 065
  2. PREGABALIN [Suspect]
     Active Substance: PREGABALIN
     Indication: Arthralgia
     Route: 065
  3. GABAPENTIN [Suspect]
     Active Substance: GABAPENTIN
     Indication: Arthralgia
     Route: 065
  4. BRINZOLAMIDE\TIMOLOL [Suspect]
     Active Substance: BRINZOLAMIDE\TIMOLOL
     Indication: Glaucoma
     Route: 047
  5. VITAMIN B6 [Suspect]
     Active Substance: PYRIDOXINE HYDROCHLORIDE
     Route: 065
  6. ESTRADIOL [Suspect]
     Active Substance: ESTRADIOL
     Indication: Product used for unknown indication
     Route: 062
  7. AZOPT [Suspect]
     Active Substance: BRINZOLAMIDE
     Indication: Glaucoma
     Route: 047
  8. DICLOFENAC [Concomitant]
     Active Substance: DICLOFENAC
     Indication: Arthralgia
     Route: 065
  9. IPRATROPIUM [Suspect]
     Active Substance: IPRATROPIUM
     Indication: Rhinitis
     Route: 045
  10. IPRATROPIUM [Suspect]
     Active Substance: IPRATROPIUM
     Indication: Product used for unknown indication
  11. IPRATROPIUM BROMIDE [Suspect]
     Active Substance: IPRATROPIUM BROMIDE
     Indication: Product used for unknown indication
     Route: 045
  12. DICLOFENAC DIETHYLAMINE [Suspect]
     Active Substance: DICLOFENAC DIETHYLAMINE
  13. PSEUDOEPHEDRINE HYDROCHLORIDE [Suspect]
     Active Substance: PSEUDOEPHEDRINE HYDROCHLORIDE
     Indication: Product used for unknown indication
  14. DICLOFENAC SODIUM [Suspect]
     Active Substance: DICLOFENAC SODIUM
     Indication: Arthralgia
     Route: 047
  15. AZARGA [Suspect]
     Active Substance: BRINZOLAMIDE\TIMOLOL MALEATE
  16. ACETAMINOPHEN [Concomitant]
     Active Substance: ACETAMINOPHEN
  17. LATANOPROST [Suspect]
     Active Substance: LATANOPROST
     Indication: Glaucoma
     Route: 047
  18. LATANOPROST [Suspect]
     Active Substance: LATANOPROST
     Indication: Product used for unknown indication
     Route: 047
  19. LATANOPROST [Suspect]
     Active Substance: LATANOPROST
     Indication: Glaucoma
     Route: 047
  20. CALCIUM CARBONATE [Suspect]
     Active Substance: CALCIUM CARBONATE
     Indication: Product used for unknown indication
     Route: 065
  21. TELMISARTAN [Suspect]
     Active Substance: TELMISARTAN
     Indication: Hypertension
     Route: 065
  22. TELMISARTAN [Suspect]
     Active Substance: TELMISARTAN
     Indication: Product used for unknown indication
  23. ZOPICLONE [Suspect]
     Active Substance: ZOPICLONE
     Indication: Insomnia
     Route: 065
  24. ZOPICLONE [Suspect]
     Active Substance: ZOPICLONE
     Indication: Product used for unknown indication
  25. CLONAZEPAM [Suspect]
     Active Substance: CLONAZEPAM
     Indication: Product used for unknown indication
     Route: 065
  26. ESTRADIOL [Suspect]
     Active Substance: ESTRADIOL
     Indication: Menopausal symptoms
     Route: 065
  27. ATORVASTATIN [Concomitant]
     Active Substance: ATORVASTATIN
     Indication: Dyslipidaemia
     Route: 065
  28. ATORVASTATIN [Concomitant]
     Active Substance: ATORVASTATIN
     Indication: Product used for unknown indication
  29. VITAMIN D3 [Suspect]
     Active Substance: CHOLECALCIFEROL
     Indication: Product used for unknown indication
     Route: 065
  30. VITAMINS [Suspect]
     Active Substance: VITAMINS
     Indication: Product use in unapproved indication
     Route: 065
  31. AMOXICILLIN [Concomitant]
     Active Substance: AMOXICILLIN
     Route: 065
  32. ACETAMINOPHEN [Suspect]
     Active Substance: ACETAMINOPHEN
     Indication: Product used for unknown indication
     Route: 065
  33. IBUPROFEN [Suspect]
     Active Substance: IBUPROFEN
     Indication: Arthralgia
     Route: 065
  34. CHOLECALCIFEROL [Concomitant]
     Active Substance: CHOLECALCIFEROL
     Indication: Product used for unknown indication
  35. ATORVASTATIN CALCIUM [Suspect]
     Active Substance: ATORVASTATIN CALCIUM
     Indication: Dyslipidaemia
  36. PYRIDOXINE HYDROCHLORIDE [Suspect]
     Active Substance: PYRIDOXINE HYDROCHLORIDE
     Indication: Product used for unknown indication
     Route: 065
  37. ACETAMINOPHEN\PSEUDOEPHEDRINE [Concomitant]
     Active Substance: ACETAMINOPHEN\PSEUDOEPHEDRINE
     Indication: Product used for unknown indication
  38. VITAMIN B6 [Concomitant]
     Active Substance: PYRIDOXINE HYDROCHLORIDE
     Indication: Product used for unknown indication
  39. PYRIDOXINE [Suspect]
     Active Substance: PYRIDOXINE
     Indication: Rhinitis
     Route: 045
  40. DEXPANTHENOL [Suspect]
     Active Substance: DEXPANTHENOL
     Indication: Product used for unknown indication
  41. ERGOCALCIFEROL [Suspect]
     Active Substance: ERGOCALCIFEROL
     Indication: Product used for unknown indication
  42. FOLIC ACID [Suspect]
     Active Substance: FOLIC ACID
     Indication: Product used for unknown indication
  43. VITAMIN A [Suspect]
     Active Substance: VITAMIN A
     Indication: Product used for unknown indication
  44. RIBOFLAVIN [Suspect]
     Active Substance: RIBOFLAVIN
     Indication: Product used for unknown indication
  45. THIAMINE HYDROCHLORIDE [Suspect]
     Active Substance: THIAMINE HYDROCHLORIDE
     Indication: Product used for unknown indication
  46. NICOTINAMIDE [Suspect]
     Active Substance: NIACINAMIDE
     Indication: Product used for unknown indication
  47. MINERALS\VITAMINS [Concomitant]
     Active Substance: MINERALS\VITAMINS
     Indication: Product used for unknown indication
  48. AMOXICILLIN TRIHYDRATE [Suspect]
     Active Substance: AMOXICILLIN
     Indication: Sinusitis
  49. ACETAMINOPHEN\PSEUDOEPHEDRINE [Concomitant]
     Active Substance: ACETAMINOPHEN\PSEUDOEPHEDRINE
  50. VITAMIN C [Suspect]
     Active Substance: ASCORBIC ACID
     Indication: Product used for unknown indication
     Route: 065
  51. BRINZOLAMIDE\TIMOLOL MALEATE [Suspect]
     Active Substance: BRINZOLAMIDE\TIMOLOL MALEATE
     Indication: Glaucoma
     Route: 047

REACTIONS (8)
  - Toxic epidermal necrolysis [Recovered/Resolved]
  - Haemoglobin decreased [Recovered/Resolved]
  - Product use in unapproved indication [Recovered/Resolved]
  - Rash erythematous [Recovered/Resolved]
  - Off label use [Recovered/Resolved]
  - Epidermal necrosis [Recovered/Resolved]
  - Rash papular [Recovered/Resolved]
  - Nikolsky^s sign positive [Recovered/Resolved]
